FAERS Safety Report 14119258 (Version 1)
Quarter: 2017Q4

REPORT INFORMATION
  Report Type: Spontaneous
  Country: US (occurrence: US)
  Receive Date: 20171023
  Receipt Date: 20171023
  Transmission Date: 20180321
  Serious: Yes (Disabling)
  Sender: FDA-Public Use
  Company Number: None

PATIENT
  Age: 30 Year
  Sex: Female
  Weight: 65.25 kg

DRUGS (1)
  1. XULANE [Suspect]
     Active Substance: ETHINYL ESTRADIOL\NORELGESTROMIN
     Indication: CONTRACEPTION
     Dosage: OTHER STRENGTH:MCG;QUANTITY:3 PATCH(ES);OTHER FREQUENCY:WEEKLY;?
     Route: 061
     Dates: start: 20170929, end: 20171020

REACTIONS (2)
  - Pregnancy on contraceptive [None]
  - Maternal exposure before pregnancy [None]

NARRATIVE: CASE EVENT DATE: 20171021
